FAERS Safety Report 24384015 (Version 2)
Quarter: 2024Q4

REPORT INFORMATION
  Report Type: Spontaneous
  Country: US (occurrence: US)
  Receive Date: 20241001
  Receipt Date: 20241024
  Transmission Date: 20250114
  Serious: No
  Sender: ROCHE
  Company Number: US-ROCHE-10000092195

PATIENT
  Age: 45 Year
  Sex: Female

DRUGS (3)
  1. XOLAIR PFS [Suspect]
     Active Substance: OMALIZUMAB
     Indication: Idiopathic urticaria
     Dosage: STRENGTH: 300MG/2ML
     Route: 058
     Dates: start: 202206
  2. XOLAIR PFS [Suspect]
     Active Substance: OMALIZUMAB
  3. DUPIXENT PEN(2-PK) [Concomitant]
     Indication: Dermatitis
     Dosage: INJECT 2 PENS UNDER THE SKIN ON DAY 1, THEN INJECT:1 PEN ON DAY 15, THEN 1 PEN EVERY 14 DAYS, THEREA
     Route: 058

REACTIONS (1)
  - Rash [Unknown]
